FAERS Safety Report 23315761 (Version 1)
Quarter: 2023Q4

REPORT INFORMATION
  Report Type: Spontaneous
  Country: FR (occurrence: FR)
  Receive Date: 20231219
  Receipt Date: 20231219
  Transmission Date: 20240109
  Serious: Yes (Other)
  Sender: FDA-Public Use
  Company Number: FR-ABBVIE-5520540

PATIENT
  Age: 88 Year
  Sex: Female

DRUGS (8)
  1. PREDNISOLONE ACETATE [Suspect]
     Active Substance: PREDNISOLONE ACETATE
     Indication: Uveitis
     Dosage: FOUR TIMES PER DAY
     Route: 065
     Dates: start: 202110, end: 202110
  2. PREDNISOLONE ACETATE [Suspect]
     Active Substance: PREDNISOLONE ACETATE
     Indication: Ocular vasculitis
  3. METHYLPREDNISOLONE [Suspect]
     Active Substance: METHYLPREDNISOLONE
     Indication: Uveitis
     Route: 042
     Dates: start: 202110, end: 202110
  4. METHYLPREDNISOLONE [Suspect]
     Active Substance: METHYLPREDNISOLONE
     Indication: Ocular vasculitis
  5. TIMOLOL [Concomitant]
     Active Substance: TIMOLOL
     Indication: Prophylaxis
     Dates: start: 202110
  6. ATROPINE [Concomitant]
     Active Substance: ATROPINE\ATROPINE SULFATE
     Indication: Vasodilation procedure
     Dates: start: 202110
  7. BROLUCIZUMAB [Concomitant]
     Active Substance: BROLUCIZUMAB
     Indication: Neovascular age-related macular degeneration
     Dosage: INTRAVITREAL INJECTION, OS (RIGHT EYE)
     Dates: start: 202109
  8. BROLUCIZUMAB [Concomitant]
     Active Substance: BROLUCIZUMAB
     Indication: Neovascular age-related macular degeneration

REACTIONS (1)
  - Suicidal ideation [Unknown]

NARRATIVE: CASE EVENT DATE: 20211001
